FAERS Safety Report 18261846 (Version 1)
Quarter: 2020Q3

REPORT INFORMATION
  Report Type: Spontaneous
  Country: US (occurrence: US)
  Receive Date: 20200913
  Receipt Date: 20200913
  Transmission Date: 20201103
  Serious: No
  Sender: FDA-Public Use
  Company Number: None

PATIENT
  Age: 49 Year
  Sex: Female

DRUGS (1)
  1. TYSABRI [Suspect]
     Active Substance: NATALIZUMAB
     Indication: MULTIPLE SCLEROSIS
     Dosage: ?          OTHER STRENGTH:300MG/15ML;?
     Route: 042
     Dates: start: 20200807, end: 20200904

REACTIONS (5)
  - Depression [None]
  - Mobility decreased [None]
  - Suicidal ideation [None]
  - Anxiety [None]
  - Adverse drug reaction [None]

NARRATIVE: CASE EVENT DATE: 20200904
